FAERS Safety Report 6127051-3 (Version None)
Quarter: 2009Q1

REPORT INFORMATION
  Report Type: 
  Country: None (occurrence: None)
  Receive Date: 20090320
  Receipt Date: 20090313
  Transmission Date: 20090719
  Serious: Yes (Other)
  Sender: FDA-Public Use
  Company Number: US-B.I. PHARMACEUTICALS,INC./RIDGEFIELD-2009-BP-03221BP

PATIENT
  Sex: Female

DRUGS (9)
  1. SPIRIVA [Suspect]
     Indication: CHRONIC OBSTRUCTIVE PULMONARY DISEASE
     Dosage: 18MCG
     Route: 055
     Dates: start: 20050101
  2. COZAAR [Concomitant]
     Indication: HYPERTENSION
     Dosage: 100MG
     Route: 048
  3. BISOPROLOL FUMARATE AND HYDROCHLOROTHIAZIDE [Concomitant]
     Indication: HYPERTENSION
     Route: 048
  4. QVAR 40 [Concomitant]
     Indication: CHRONIC OBSTRUCTIVE PULMONARY DISEASE
     Dosage: 2PUF
     Route: 055
  5. PROVENTIL [Concomitant]
     Indication: CHRONIC OBSTRUCTIVE PULMONARY DISEASE
     Dosage: 4PUF
     Route: 055
  6. ACTONEL [Concomitant]
     Indication: OSTEOPOROSIS
     Route: 048
  7. SYNTHROID [Concomitant]
     Indication: HYPOTHYROIDISM
     Route: 048
  8. OMEPRAZOLE [Concomitant]
     Indication: GASTROOESOPHAGEAL REFLUX DISEASE
     Route: 048
  9. LOVASTATIN [Concomitant]
     Indication: BLOOD CHOLESTEROL INCREASED
     Dosage: 40MG
     Route: 048

REACTIONS (2)
  - VISION BLURRED [None]
  - VISUAL IMPAIRMENT [None]
